FAERS Safety Report 9772170 (Version 4)
Quarter: 2018Q3

REPORT INFORMATION
  Report Type: Report from Study
  Country: FR (occurrence: FR)
  Receive Date: 20131219
  Receipt Date: 20180815
  Transmission Date: 20181010
  Serious: Yes (Death, Hospitalization)
  Sender: FDA-Public Use
  Company Number: FR-CELGENEUS-056-C4047-13114375

PATIENT
  Age: 72 Year
  Sex: Female
  Weight: 48 kg

DRUGS (4)
  1. NEO?DEX [Suspect]
     Active Substance: DEXTROMETHORPHAN HYDROBROMIDE
     Indication: PLASMA CELL MYELOMA
     Route: 065
     Dates: start: 201201, end: 20131112
  2. CC?4047 [Suspect]
     Active Substance: POMALIDOMIDE
     Indication: PLASMA CELL MYELOMA
     Route: 048
     Dates: start: 201301, end: 20131112
  3. SILENTAN [Concomitant]
     Indication: BONE PAIN
     Route: 065
     Dates: start: 2010
  4. SEROPLEX [Concomitant]
     Active Substance: ESCITALOPRAM OXALATE
     Indication: ADJUSTMENT DISORDER WITH DEPRESSED MOOD
     Route: 065
     Dates: start: 2010

REACTIONS (1)
  - Cerebral toxoplasmosis [Fatal]

NARRATIVE: CASE EVENT DATE: 20131112
